FAERS Safety Report 24573981 (Version 1)
Quarter: 2024Q4

REPORT INFORMATION
  Report Type: Report from Study
  Country: MX (occurrence: MX)
  Receive Date: 20241104
  Receipt Date: 20241104
  Transmission Date: 20250115
  Serious: Yes (Death)
  Sender: REGENERON
  Company Number: MX-BAYER-2024A156002

PATIENT
  Age: 57 Year
  Sex: Male

DRUGS (1)
  1. EYLEA [Suspect]
     Active Substance: AFLIBERCEPT
     Indication: Retinal neovascularisation
     Dosage: 50 MICROLITRES, SOLUTION FOR INJECTION, 40 MG/ML
     Dates: start: 20220502

REACTIONS (2)
  - Death [Fatal]
  - Off label use [Unknown]

NARRATIVE: CASE EVENT DATE: 20241025
